FAERS Safety Report 7965105-7 (Version None)
Quarter: 2011Q4

REPORT INFORMATION
  Report Type: 
  Country: None (occurrence: None)
  Receive Date: 20111208
  Receipt Date: 20111129
  Transmission Date: 20120403
  Serious: Yes (Other)
  Sender: FDA-Public Use
  Company Number: SE-JNJFOC-20111110481

PATIENT
  Age: 19 Year
  Sex: Female

DRUGS (2)
  1. INVEGA [Suspect]
     Indication: BIPOLAR DISORDER
     Route: 048
  2. DIAZEPAM [Concomitant]
     Route: 065

REACTIONS (2)
  - SYNCOPE [None]
  - ELECTROCARDIOGRAM T WAVE INVERSION [None]
